FAERS Safety Report 5477029-8 (Version None)
Quarter: 2007Q4

REPORT INFORMATION
  Report Type: 
  Country: None (occurrence: None)
  Receive Date: 20071002
  Receipt Date: 20071002
  Transmission Date: 20080405
  Serious: Yes (Other)
  Sender: FDA-Public Use
  Company Number: None

PATIENT
  Age: 62 Year
  Sex: Male
  Weight: 133.3575 kg

DRUGS (1)
  1. BYETTA [Suspect]
     Indication: DIABETES MELLITUS INADEQUATE CONTROL
     Dosage: 10 MCG INJECTION 2 X DAY SQ
     Route: 058
     Dates: start: 20070608, end: 20070611

REACTIONS (3)
  - RASH PUSTULAR [None]
  - ROSACEA [None]
  - SKIN DISORDER [None]
